FAERS Safety Report 15101011 (Version 4)
Quarter: 2018Q3

REPORT INFORMATION
  Report Type: Spontaneous
  Country: DE (occurrence: DE)
  Receive Date: 20180703
  Receipt Date: 20180904
  Transmission Date: 20181010
  Serious: Yes (Congenital Anomaly, Other)
  Sender: FDA-Public Use
  Company Number: PHHY2018DE028926

PATIENT
  Sex: Male

DRUGS (4)
  1. LISINOPRIL. [Suspect]
     Active Substance: LISINOPRIL
     Indication: FOETAL EXPOSURE DURING PREGNANCY
     Dosage: MATERNAL DOSE: 5 MG
     Route: 064
  2. OPIPRAMOL [Suspect]
     Active Substance: OPIPRAMOL
     Indication: FOETAL EXPOSURE DURING PREGNANCY
     Dosage: UNK
     Route: 064
  3. NYSTATIN. [Suspect]
     Active Substance: NYSTATIN
     Indication: FOETAL EXPOSURE DURING PREGNANCY
     Dosage: UNK
     Route: 064
  4. DEQUALINIUM [Suspect]
     Active Substance: DEQUALINIUM
     Indication: FOETAL EXPOSURE DURING PREGNANCY
     Dosage: UNK
     Route: 064

REACTIONS (5)
  - Atrial septal defect [Unknown]
  - Patent ductus arteriosus [Unknown]
  - Transposition of the great vessels [Unknown]
  - Amniocentesis [Unknown]
  - Foetal exposure during pregnancy [Unknown]
